FAERS Safety Report 9904473 (Version 2)
Quarter: 2014Q1

REPORT INFORMATION
  Report Type: Spontaneous
  Country: US (occurrence: US)
  Receive Date: 20140218
  Receipt Date: 20140225
  Transmission Date: 20141002
  Serious: Yes (Hospitalization, Other)
  Sender: FDA-Public Use
  Company Number: US-BAYER-2014-021157

PATIENT
  Age: 61 Year
  Sex: Female
  Weight: 86 kg

DRUGS (11)
  1. ALEVE CAPLET [Suspect]
     Indication: ANALGESIC THERAPY
     Dosage: 2 DF, PRN
     Route: 048
     Dates: start: 2006
  2. ALEVE CAPLET [Suspect]
     Indication: ANALGESIC THERAPY
     Dosage: 2 DF, QD
     Route: 048
     Dates: start: 201306, end: 20140202
  3. FOLIC ACID [Concomitant]
  4. NEXIUM [Concomitant]
  5. METFORMIN [Concomitant]
  6. STOOL SOFTENER [Concomitant]
  7. ABILIFY [Concomitant]
  8. VALIUM [Concomitant]
  9. VISTARIL [Concomitant]
  10. NEURONTIN [Concomitant]
  11. ENALAPRIL [Concomitant]

REACTIONS (7)
  - Haematemesis [Recovered/Resolved]
  - Haematochezia [Recovered/Resolved]
  - Renal disorder [Not Recovered/Not Resolved]
  - Liver disorder [Not Recovered/Not Resolved]
  - Renal haemorrhage [None]
  - Hepatic haemorrhage [None]
  - Incorrect drug administration duration [None]
